FAERS Safety Report 22146041 (Version 1)
Quarter: 2023Q1

REPORT INFORMATION
  Report Type: Other
  Country: US (occurrence: None)
  Receive Date: 20230328
  Receipt Date: 20230328
  Transmission Date: 20230417
  Serious: No
  Sender: FDA-Public Use
  Company Number: US-ROCHE-3318109

PATIENT
  Age: 33 Year
  Sex: Female

DRUGS (1)
  1. OCREVUS [Suspect]
     Active Substance: OCRELIZUMAB
     Indication: Relapsing multiple sclerosis
     Route: 065

REACTIONS (7)
  - Mean cell haemoglobin concentration decreased [Unknown]
  - Blood immunoglobulin G decreased [Unknown]
  - Blood immunoglobulin M decreased [Unknown]
  - Blood immunoglobulin A decreased [Unknown]
  - Blood urea nitrogen/creatinine ratio decreased [Unknown]
  - Protein total decreased [Unknown]
  - Hepatitis B surface antibody positive [Unknown]
